FAERS Safety Report 7238093-9 (Version None)
Quarter: 2011Q1

REPORT INFORMATION
  Report Type: 
  Country: None (occurrence: None)
  Receive Date: 20110121
  Receipt Date: 20110117
  Transmission Date: 20110831
  Serious: Yes (Hospitalization)
  Sender: FDA-Public Use
  Company Number: B0695195A

PATIENT
  Sex: Female

DRUGS (1)
  1. AMOXYCILLIN TRIHYDRATE + POTASSIUM CLAVULANATE [Suspect]
     Indication: BRONCHITIS
     Dosage: 1UNIT THREE TIMES PER DAY
     Route: 048

REACTIONS (3)
  - CHOLESTASIS [None]
  - JAUNDICE [None]
  - PRURITUS GENERALISED [None]
